FAERS Safety Report 6530910-0 (Version None)
Quarter: 2010Q1

REPORT INFORMATION
  Report Type: 
  Country: None (occurrence: None)
  Receive Date: 20100108
  Receipt Date: 20090529
  Transmission Date: 20100710
  Serious: No
  Sender: FDA-Public Use
  Company Number: A0787399A

PATIENT
  Age: 67 Year
  Sex: Male

DRUGS (4)
  1. LOVAZA [Suspect]
     Dosage: 1CAP PER DAY
     Route: 048
     Dates: start: 20090101
  2. LIPITOR [Suspect]
     Dosage: 10MG PER DAY
     Dates: start: 20080101, end: 20090501
  3. VITAMINS [Concomitant]
  4. ANTIOXIDANTS [Concomitant]

REACTIONS (1)
  - THERAPEUTIC RESPONSE UNEXPECTED [None]
